FAERS Safety Report 23545153 (Version 1)
Quarter: 2024Q1

REPORT INFORMATION
  Report Type: Spontaneous
  Country: US (occurrence: None)
  Receive Date: 20240218
  Receipt Date: 20240218
  Transmission Date: 20240410
  Serious: Yes (Other)
  Sender: FDA-Public Use
  Company Number: None

PATIENT
  Age: 47 Year
  Sex: Female
  Weight: 83.25 kg

DRUGS (1)
  1. OZEMPIC [Suspect]
     Active Substance: SEMAGLUTIDE
     Indication: Obesity
     Dates: start: 20230224, end: 20230915

REACTIONS (6)
  - Abdominal pain [None]
  - Muscle spasms [None]
  - Nausea [None]
  - Vomiting [None]
  - Stress [None]
  - Anxiety [None]
